FAERS Safety Report 7854113-2 (Version None)
Quarter: 2011Q4

REPORT INFORMATION
  Report Type: 
  Country: None (occurrence: None)
  Receive Date: 20111026
  Receipt Date: 20111024
  Transmission Date: 20120403
  Serious: Yes (Death)
  Sender: FDA-Public Use
  Company Number: JP-EISAI INC-E2020-09893-SPO-JP

PATIENT
  Age: 86 Year
  Sex: Female

DRUGS (8)
  1. ARICEPT [Suspect]
     Indication: DEMENTIA ALZHEIMER'S TYPE
     Route: 048
     Dates: start: 20111017
  2. PURSENNID [Concomitant]
     Route: 048
     Dates: start: 20100701
  3. LOCHOLEST [Concomitant]
     Route: 048
     Dates: start: 20100701
  4. PLAVIX [Concomitant]
     Route: 048
     Dates: start: 20100701
  5. TOWARAT-CR [Concomitant]
     Route: 048
     Dates: start: 20100701
  6. HALCION [Concomitant]
     Route: 048
     Dates: start: 20100701
  7. LOXONIN [Concomitant]
     Route: 048
     Dates: start: 20100701
  8. NITRAZEPAM [Concomitant]
     Route: 048
     Dates: start: 20100701

REACTIONS (1)
  - COMPLETED SUICIDE [None]
